FAERS Safety Report 16982940 (Version 1)
Quarter: 2019Q4

REPORT INFORMATION
  Report Type: Spontaneous
  Country: AT (occurrence: AT)
  Receive Date: 20191101
  Receipt Date: 20191101
  Transmission Date: 20200122
  Serious: Yes (Death, Other)
  Sender: FDA-Public Use
  Company Number: AT-AMGEN-AUTSP2019165638

PATIENT
  Age: 89 Year
  Sex: Female

DRUGS (10)
  1. NOVALGIN (METAMIZOLE SODIUM) [Concomitant]
     Active Substance: METAMIZOLE SODIUM
  2. DANCOR [Concomitant]
     Active Substance: NICORANDIL
  3. LASIX [Concomitant]
     Active Substance: FUROSEMIDE
  4. CLOPIDOGREL [Concomitant]
     Active Substance: CLOPIDOGREL BISULFATE
  5. HYDAL [Concomitant]
     Active Substance: HYDROMORPHONE HYDROCHLORIDE
  6. PROLIA [Suspect]
     Active Substance: DENOSUMAB
     Indication: OSTEOPOROSIS
     Dosage: 60 MILLIGRAM
     Route: 058
     Dates: start: 20150911, end: 20190826
  7. CAL D VITA [Concomitant]
     Dosage: UNK
     Dates: start: 2005
  8. OLEOVIT D3 [Concomitant]
     Active Substance: CHOLECALCIFEROL
     Dosage: UNK
     Dates: start: 2015
  9. APREDNISLON [Concomitant]
     Active Substance: PREDNISOLONE
     Dosage: UNK UNK, QD
  10. TEBOFORTAN [Concomitant]
     Active Substance: GINKGO

REACTIONS (1)
  - Osteonecrosis of jaw [Fatal]

NARRATIVE: CASE EVENT DATE: 20190826
